FAERS Safety Report 8575253-9 (Version None)
Quarter: 2012Q3

REPORT INFORMATION
  Report Type: 
  Country: None (occurrence: None)
  Receive Date: 20120807
  Receipt Date: 20120718
  Transmission Date: 20120928
  Serious: No
  Sender: FDA-Public Use
  Company Number: US-009507513-1207USA009233

PATIENT

DRUGS (3)
  1. TELAPREVIR [Suspect]
     Indication: HEPATITIS C
     Dosage: 4 X 42 TABS
  2. REBETOL [Suspect]
     Indication: HEPATITIS C
     Dosage: UNK
  3. PEG-INTRON [Suspect]
     Indication: HEPATITIS C
     Dosage: INJECT 0.4 ML ONCE A WEEK (OF 80 MCG/0.5ML)
     Route: 058

REACTIONS (2)
  - RASH GENERALISED [None]
  - INFLUENZA LIKE ILLNESS [None]
